FAERS Safety Report 6199671-1 (Version None)
Quarter: 2009Q2

REPORT INFORMATION
  Report Type: 
  Country: None (occurrence: None)
  Receive Date: 20090519
  Receipt Date: 20090508
  Transmission Date: 20091009
  Serious: Yes (Hospitalization)
  Sender: FDA-Public Use
  Company Number: GXKR2009AR05603

PATIENT

DRUGS (1)
  1. ACETYLSALICYLIC ACID SRT [Suspect]
     Indication: VIRAL INFECTION

REACTIONS (11)
  - ALANINE AMINOTRANSFERASE INCREASED [None]
  - ASPARTATE AMINOTRANSFERASE INCREASED [None]
  - BLOOD BILIRUBIN INCREASED [None]
  - BLOOD LACTATE DEHYDROGENASE INCREASED [None]
  - ENCEPHALOPATHY [None]
  - HEPATOMEGALY [None]
  - HYPERAMMONAEMIA [None]
  - HYPOGLYCAEMIA [None]
  - JAUNDICE [None]
  - LIVER FUNCTION TEST ABNORMAL [None]
  - REYE'S SYNDROME [None]
